FAERS Safety Report 7559581-1 (Version None)
Quarter: 2011Q2

REPORT INFORMATION
  Report Type: 
  Country: None (occurrence: None)
  Receive Date: 20110607
  Receipt Date: 20110526
  Transmission Date: 20111010
  Serious: Yes (Other)
  Sender: FDA-Public Use
  Company Number: THYM-1000605

PATIENT
  Age: 38 Year
  Sex: Female

DRUGS (6)
  1. TACROLIMUS [Suspect]
     Indication: TRANSPLANT
     Dates: start: 20051101, end: 20060101
  2. THYMOGLOBULIN [Suspect]
     Indication: PROPHYLAXIS AGAINST TRANSPLANT REJECTION
     Dosage: 1.25 MG/KG, QD, INTRAVENOUS
     Route: 042
     Dates: start: 20051127, end: 20051206
  3. SIROLIMUS (RAPAMUNE) [Concomitant]
  4. MYCOPHENOLATE MOFETIL [Suspect]
     Indication: TRANSPLANT
     Dosage: 2 G, QD
     Dates: start: 20051101
  5. PREDNISONE [Suspect]
     Indication: TRANSPLANT
     Dosage: 250 MG, QD 100MG, QD 60 MG,QD 10 MG, QD
     Dates: start: 20051128, end: 20051208
  6. PREDNISONE [Suspect]
     Indication: TRANSPLANT
     Dosage: 250 MG, QD 100MG, QD 60 MG,QD 10 MG, QD
     Dates: start: 20051127, end: 20051127

REACTIONS (6)
  - HYPERTENSION [None]
  - RENAL IMPAIRMENT [None]
  - LIPIDS INCREASED [None]
  - HEPATOTOXICITY [None]
  - SKIN GRAFT REJECTION [None]
  - HERPES SIMPLEX [None]
